FAERS Safety Report 5642630-5 (Version None)
Quarter: 2008Q1

REPORT INFORMATION
  Report Type: 
  Country: None (occurrence: None)
  Receive Date: 20080228
  Receipt Date: 20080219
  Transmission Date: 20080703
  Serious: Yes (Other)
  Sender: FDA-Public Use
  Company Number: GB-JNJFOC-20080204460

PATIENT
  Sex: Male
  Weight: 100 kg

DRUGS (7)
  1. REMICADE [Suspect]
     Indication: RHEUMATOID ARTHRITIS
     Route: 042
  2. METHOTREXATE [Concomitant]
  3. CANDESARTAN CILEXETIL [Concomitant]
  4. FOLIC ACID [Concomitant]
  5. FOSAMAX [Concomitant]
  6. ACETAMINOPHEN [Concomitant]
  7. BENDROFLU [Concomitant]

REACTIONS (1)
  - RENAL CELL CARCINOMA [None]
